FAERS Safety Report 23929315 (Version 2)
Quarter: 2025Q3

REPORT INFORMATION
  Report Type: Spontaneous
  Country: US (occurrence: US)
  Receive Date: 20240601
  Receipt Date: 20250703
  Transmission Date: 20251021
  Serious: No
  Sender: RADIUS PHARM
  Company Number: US-RADIUS HEALTH INC.-2024US002212

PATIENT
  Sex: Female
  Weight: 40.8 kg

DRUGS (1)
  1. TYMLOS [Suspect]
     Active Substance: ABALOPARATIDE
     Indication: Product used for unknown indication
     Route: 065

REACTIONS (5)
  - Waist circumference increased [Not Recovered/Not Resolved]
  - Nausea [Unknown]
  - Muscle spasms [Recovered/Resolved]
  - Alopecia [Unknown]
  - Injection site bruising [Unknown]
